FAERS Safety Report 7700029-1 (Version None)
Quarter: 2011Q3

REPORT INFORMATION
  Report Type: 
  Country: None (occurrence: None)
  Receive Date: 20110822
  Receipt Date: 20110809
  Transmission Date: 20111222
  Serious: Yes (Other)
  Sender: FDA-Public Use
  Company Number: US-ELI_LILLY_AND_COMPANY-US201105003446

PATIENT
  Sex: Female

DRUGS (6)
  1. METOPROLOL SUCCINATE [Concomitant]
     Dosage: UNK, UNKNOWN
     Route: 065
  2. RELAFIN [Concomitant]
     Dosage: UNK, UNKNOWN
     Route: 065
  3. VERAPAMIL [Concomitant]
     Indication: TACHYCARDIA
     Dosage: UNK, UNKNOWN
     Route: 065
  4. CYMBALTA [Suspect]
     Indication: NEURALGIA
     Dosage: 60 MG, UNKNOWN
     Route: 065
     Dates: start: 20070101
  5. CYMBALTA [Suspect]
     Dosage: 30 MG, QD
     Route: 065
     Dates: start: 20110501
  6. CYMBALTA [Suspect]
     Dosage: 90 MG, QD
     Route: 065
     Dates: start: 20100101, end: 20110501

REACTIONS (5)
  - HEART RATE INCREASED [None]
  - OFF LABEL USE [None]
  - HAEMATOCHEZIA [None]
  - BACK PAIN [None]
  - CARDIAC DISORDER [None]
